FAERS Safety Report 13950326 (Version 1)
Quarter: 2017Q3

REPORT INFORMATION
  Report Type: Spontaneous
  Country: US (occurrence: US)
  Receive Date: 20170908
  Receipt Date: 20170908
  Transmission Date: 20171128
  Serious: No
  Sender: FDA-Public Use
  Company Number: US-AMNEAL PHARMACEUTICALS-2017AMN00724

PATIENT
  Sex: Female
  Weight: 56.15 kg

DRUGS (24)
  1. LIPOFEN [Concomitant]
     Active Substance: FENOFIBRATE
  2. PROVIGIL [Concomitant]
     Active Substance: MODAFINIL
  3. FLOVENT [Concomitant]
     Active Substance: FLUTICASONE PROPIONATE
  4. VIIBRYD [Concomitant]
     Active Substance: VILAZODONE HYDROCHLORIDE
  5. DIAZEPAM. [Concomitant]
     Active Substance: DIAZEPAM
  6. CHOLESTRAMINE [Concomitant]
  7. BOTOX [Concomitant]
     Active Substance: ONABOTULINUMTOXINA
  8. TIROSINT [Concomitant]
     Active Substance: LEVOTHYROXINE SODIUM
  9. ZOLOROFT [Concomitant]
  10. MODAFINIL. [Concomitant]
     Active Substance: MODAFINIL
  11. CLONAZEPAM. [Concomitant]
     Active Substance: CLONAZEPAM
  12. CLONIDINE. [Concomitant]
     Active Substance: CLONIDINE
  13. TYLENOL [Concomitant]
     Active Substance: ACETAMINOPHEN
  14. NAPROXEN. [Concomitant]
     Active Substance: NAPROXEN
  15. BACLOFEN. [Concomitant]
     Active Substance: BACLOFEN
  16. LEVOTHYROXINE. [Concomitant]
     Active Substance: LEVOTHYROXINE
  17. DIOVAN [Concomitant]
     Active Substance: VALSARTAN
  18. VENLAFAXINE [Concomitant]
     Active Substance: VENLAFAXINE HYDROCHLORIDE
  19. OXYBUTYNIN CHLORIDE. [Suspect]
     Active Substance: OXYBUTYNIN CHLORIDE
     Indication: NEUROGENIC BLADDER
  20. AMPYRA [Concomitant]
     Active Substance: DALFAMPRIDINE
     Indication: MULTIPLE SCLEROSIS
     Dosage: 10 MG, 2X/DAY
     Dates: start: 20120118
  21. EFFEXOR [Concomitant]
     Active Substance: VENLAFAXINE HYDROCHLORIDE
  22. FOLIC ACID. [Concomitant]
     Active Substance: FOLIC ACID
  23. VITAMIN D [Concomitant]
     Active Substance: CHOLECALCIFEROL
  24. PROLIA [Concomitant]
     Active Substance: DENOSUMAB

REACTIONS (1)
  - Depression [Not Recovered/Not Resolved]
